FAERS Safety Report 17519153 (Version 1)
Quarter: 2020Q1

REPORT INFORMATION
  Report Type: Report from Study
  Country: IT (occurrence: IT)
  Receive Date: 20200310
  Receipt Date: 20200310
  Transmission Date: 20200409
  Serious: Yes (Other)
  Sender: FDA-Public Use
  Company Number: IT-TEVA-2020-IT-1199047

PATIENT
  Age: 73 Year
  Sex: Male
  Weight: 114 kg

DRUGS (10)
  1. TAMSULOSINA AUROBINDO ITALIA 0,4 MG CAPSULE RIGIDE A RILASCIO MODIFICA [Suspect]
     Active Substance: TAMSULOSIN
  2. NORVASC [Suspect]
     Active Substance: AMLODIPINE BESYLATE
     Route: 065
  3. ELIQUIS [Suspect]
     Active Substance: APIXABAN
     Indication: ATRIAL FIBRILLATION
     Dosage: 10MG
     Route: 048
     Dates: start: 20141031, end: 20200227
  4. ALLOPURINOLO TEVA ITALIA 100 MG COMPRESSE [Suspect]
     Active Substance: ALLOPURINOL
  5. LANSOPRAZOLO ABC 15 MG CAPSULE RIGIDE GASTRORESISTENTI [Suspect]
     Active Substance: LANSOPRAZOLE
  6. CARDIOASPIRIN 100 MG COMPRESSE GASTRORESISTENTI [Suspect]
     Active Substance: ASPIRIN
  7. LASIX [Suspect]
     Active Substance: FUROSEMIDE
  8. CALCITRIOLO DOC GENERICI 0,25 MICROGRAMMI CAPSULE MOLLI [Suspect]
     Active Substance: CALCITRIOL
  9. PERINDOPRIL ALMUS 4 MG COMPRESSE [Suspect]
     Active Substance: PERINDOPRIL
  10. ATENOLOLO ABC 100 MG COMPRESSE RIVESTITE CON FILM [Suspect]
     Active Substance: ATENOLOL

REACTIONS (1)
  - Haematochezia [Recovering/Resolving]

NARRATIVE: CASE EVENT DATE: 20141108
